FAERS Safety Report 23011450 (Version 4)
Quarter: 2024Q3

REPORT INFORMATION
  Report Type: Report from Study
  Country: CA (occurrence: CA)
  Receive Date: 20230929
  Receipt Date: 20240902
  Transmission Date: 20241016
  Serious: Yes (Hospitalization, Other)
  Sender: ROCHE
  Company Number: CA-002147023-NVSC2023CA102817

PATIENT
  Age: 45 Year
  Sex: Female

DRUGS (1)
  1. XOLAIR [Suspect]
     Active Substance: OMALIZUMAB
     Indication: Chronic spontaneous urticaria
     Dosage: 300 MG (EVERY 4 WEEKS)
     Route: 058
     Dates: start: 20220721

REACTIONS (3)
  - Diverticulitis [Unknown]
  - Anaphylactic reaction [Unknown]
  - Cardiac arrest [Unknown]

NARRATIVE: CASE EVENT DATE: 20230424
